FAERS Safety Report 4528158-4 (Version None)
Quarter: 2004Q4

REPORT INFORMATION
  Report Type: 
  Country: None (occurrence: None)
  Receive Date: 20041215
  Receipt Date: 20041105
  Transmission Date: 20050328
  Serious: Yes (Death)
  Sender: FDA-Public Use
  Company Number: DE-MERCK-0411DEU00115

PATIENT
  Age: 70 Year
  Sex: Male

DRUGS (8)
  1. VIOXX [Suspect]
     Indication: BACK PAIN
     Route: 048
     Dates: start: 20020902, end: 20041018
  2. VIOXX [Suspect]
     Indication: LOCALISED OSTEOARTHRITIS
     Route: 048
     Dates: start: 20020902, end: 20041018
  3. ALLOPURINOL [Concomitant]
     Indication: HYPERURICAEMIA
     Route: 065
  4. SALIX [Concomitant]
     Indication: OSTEOARTHRITIS
     Route: 065
  5. LEVOTHYROXINE SODIUM [Concomitant]
     Indication: THYROIDECTOMY
     Route: 065
  6. MAGNESIUM OXIDE [Concomitant]
     Route: 065
  7. DIPYRONE [Concomitant]
     Indication: PAIN
     Route: 065
     Dates: start: 20020201
  8. BENSERAZIDE HYDROCHLORIDE AND LEVODOPA [Concomitant]
     Indication: RESTLESS LEGS SYNDROME
     Route: 065
     Dates: start: 20010301

REACTIONS (2)
  - MYOCARDIAL INFARCTION [None]
  - SUDDEN DEATH [None]
